FAERS Safety Report 7178024-3 (Version None)
Quarter: 2010Q4

REPORT INFORMATION
  Report Type: 
  Country: None (occurrence: None)
  Receive Date: 20101220
  Receipt Date: 20101208
  Transmission Date: 20110411
  Serious: Yes (Other)
  Sender: FDA-Public Use
  Company Number: US-CELGENEUS-163-21880-09050711

PATIENT
  Age: 67 Year
  Sex: Female
  Weight: 60.9 kg

DRUGS (5)
  1. REVLIMID [Suspect]
     Route: 048
     Dates: start: 20081021, end: 20081110
  2. FLAVOPIRIDOL [Suspect]
     Dosage: 30MG/M2 OVER 30 MIN, 50MG/M2 OVER 4 HRS
     Dates: start: 20081021
  3. FLAVOPIRIDOL [Suspect]
     Dosage: 30MG/M2 OVER 30 MIN, 30 MG/M2 OVER 4 HRS
     Route: 051
     Dates: end: 20081104
  4. DEXAMETHASONE [Concomitant]
     Route: 065
  5. DEXAMETHASONE [Concomitant]
     Route: 065

REACTIONS (5)
  - DIZZINESS [None]
  - HYPOKALAEMIA [None]
  - HYPOPHOSPHATAEMIA [None]
  - NEUTROPHIL COUNT DECREASED [None]
  - PLATELET COUNT DECREASED [None]
